FAERS Safety Report 25388607 (Version 1)
Quarter: 2025Q2

REPORT INFORMATION
  Report Type: Spontaneous
  Country: CN (occurrence: CN)
  Receive Date: 20250603
  Receipt Date: 20250603
  Transmission Date: 20250717
  Serious: Yes (Other)
  Sender: GE HEALTHCARE
  Company Number: None

PATIENT
  Age: 77 Year
  Sex: Female
  Weight: 50 kg

DRUGS (3)
  1. VISIPAQUE [Suspect]
     Active Substance: IODIXANOL
     Indication: Angiocardiogram
     Route: 013
     Dates: start: 20250519, end: 20250519
  2. VISIPAQUE [Suspect]
     Active Substance: IODIXANOL
     Indication: Coronary angioplasty
  3. VISIPAQUE [Suspect]
     Active Substance: IODIXANOL
     Indication: Stent placement

REACTIONS (2)
  - Contrast media allergy [Recovering/Resolving]
  - Pruritus [Recovering/Resolving]

NARRATIVE: CASE EVENT DATE: 20250520
